FAERS Safety Report 7826038-X (Version None)
Quarter: 2011Q4

REPORT INFORMATION
  Report Type: 
  Country: None (occurrence: None)
  Receive Date: 20111019
  Receipt Date: 20111010
  Transmission Date: 20120403
  Serious: Yes (Other)
  Sender: FDA-Public Use
  Company Number: US-ASTRAZENECA-2006UW09546

PATIENT
  Age: 64 Year
  Sex: Male

DRUGS (4)
  1. CRESTOR [Suspect]
     Indication: BLOOD CHOLESTEROL INCREASED
     Route: 048
     Dates: start: 20050501, end: 20050101
  2. CRESTOR [Suspect]
     Route: 048
     Dates: start: 20050101
  3. TARKA [Concomitant]
  4. VALIUM [Concomitant]
     Route: 048

REACTIONS (4)
  - MYALGIA [None]
  - FATIGUE [None]
  - RIB FRACTURE [None]
  - WRONG TECHNIQUE IN DRUG USAGE PROCESS [None]
